FAERS Safety Report 14038102 (Version 1)
Quarter: 2017Q4

REPORT INFORMATION
  Report Type: Spontaneous
  Country: US (occurrence: US)
  Receive Date: 20171004
  Receipt Date: 20171004
  Transmission Date: 20180321
  Serious: No
  Sender: FDA-Public Use
  Company Number: US-ELI_LILLY_AND_COMPANY-US201710000986

PATIENT
  Sex: Female

DRUGS (5)
  1. HUMULIN N [Suspect]
     Active Substance: INSULIN HUMAN
     Dosage: 11 U, DAILY
     Route: 058
     Dates: start: 1967
  2. HUMULIN R [Suspect]
     Active Substance: INSULIN HUMAN
     Dosage: 3 U, DAILY
     Route: 058
     Dates: start: 1967
  3. HUMULIN N [Suspect]
     Active Substance: INSULIN HUMAN
     Indication: TYPE 1 DIABETES MELLITUS
     Dosage: 26 U, EACH MORNING
     Route: 058
     Dates: start: 1967
  4. HUMULIN R [Suspect]
     Active Substance: INSULIN HUMAN
     Indication: TYPE 1 DIABETES MELLITUS
     Dosage: 7 U, DAILY
     Route: 058
     Dates: start: 1967
  5. HUMULIN R [Suspect]
     Active Substance: INSULIN HUMAN
     Dosage: 6 U, DAILY
     Route: 058
     Dates: start: 1967

REACTIONS (2)
  - Blood glucose abnormal [Unknown]
  - Feeling abnormal [Unknown]
